FAERS Safety Report 6749713-7 (Version None)
Quarter: 2010Q2

REPORT INFORMATION
  Report Type: 
  Country: None (occurrence: None)
  Receive Date: 20100527
  Receipt Date: 20100527
  Transmission Date: 20101027
  Serious: No
  Sender: FDA-Public Use
  Company Number: None

PATIENT

DRUGS (1)
  1. BREVITAL SODIUM [Suspect]
     Dates: start: 20100506, end: 20100506

REACTIONS (1)
  - DRUG INEFFECTIVE [None]
